FAERS Safety Report 8127367-5 (Version None)
Quarter: 2012Q1

REPORT INFORMATION
  Report Type: 
  Country: None (occurrence: None)
  Receive Date: 20120210
  Receipt Date: 20120208
  Transmission Date: 20120608
  Serious: Yes (Death)
  Sender: FDA-Public Use
  Company Number: US-BRISTOL-MYERS SQUIBB COMPANY-16389397

PATIENT
  Age: 55 Year

DRUGS (1)
  1. IXEMPRA KIT [Suspect]
     Dosage: 1DF:45MG(1 VIAL)LOT# 0J031A EXP DATE :10/12 1DF=15MG (2 VIALS) LOT#01025A EXP DT:9/12

REACTIONS (1)
  - DEATH [None]
